FAERS Safety Report 9095680 (Version 1)
Quarter: 2013Q1

REPORT INFORMATION
  Report Type: Spontaneous
  Country: DK (occurrence: None)
  Receive Date: 20130123
  Receipt Date: 20130123
  Transmission Date: 20140127
  Serious: Yes (Disabling)
  Sender: FDA-Public Use
  Company Number: 2013MA000511

PATIENT
  Age: 52 Year
  Sex: Female

DRUGS (3)
  1. SERTRALINE HYDROCHLORIDE TABLETS, 100 MG (BASE) (AELLC) (SERTRALINE) [Suspect]
     Indication: DEPRESSION
     Route: 048
     Dates: start: 20120717, end: 20120907
  2. CLOZAPINE [Concomitant]
  3. METFORMIN [Concomitant]

REACTIONS (3)
  - Rash [None]
  - Skin exfoliation [None]
  - Cellulitis [None]
